FAERS Safety Report 10555688 (Version 2)
Quarter: 2015Q1

REPORT INFORMATION
  Report Type: Spontaneous
  Country: FR (occurrence: FR)
  Receive Date: 20141030
  Receipt Date: 20150112
  Transmission Date: 20150720
  Serious: Yes (Death, Hospitalization)
  Sender: FDA-Public Use
  Company Number: FR-ABBVIE-14P-056-1301883-00

PATIENT
  Age: 80 Year
  Sex: Female

DRUGS (11)
  1. BISOCAR [Suspect]
     Active Substance: BISOPROLOL FUMARATE
     Indication: HYPERTENSION
     Route: 048
  2. TAHOR [Suspect]
     Active Substance: ATORVASTATIN CALCIUM
     Indication: HYPERCHOLESTEROLAEMIA
     Route: 048
  3. NEO-MERCAZOLE [Suspect]
     Active Substance: CARBIMAZOLE
     Indication: HYPERTHYROIDISM
     Route: 048
  4. DUOPLAVIN [Suspect]
     Active Substance: ASPIRIN\CLOPIDOGREL
     Indication: ACUTE CORONARY SYNDROME
     Route: 048
  5. LASILIX [Suspect]
     Active Substance: FUROSEMIDE
     Indication: HYPERTENSION
     Route: 048
  6. EFFERALGAN [Suspect]
     Active Substance: ACETAMINOPHEN
     Indication: PRODUCT USED FOR UNKNOWN INDICATION
     Route: 048
  7. CREON [Suspect]
     Active Substance: PANCRELIPASE AMYLASE\PANCRELIPASE LIPASE\PANCRELIPASE PROTEASE
     Indication: PANCREATITIS
     Route: 048
  8. ESOMEPRAZOLE [Suspect]
     Active Substance: ESOMEPRAZOLE
     Indication: PRODUCT USED FOR UNKNOWN INDICATION
     Route: 048
  9. LORAZEPAM. [Suspect]
     Active Substance: LORAZEPAM
     Indication: PRODUCT USED FOR UNKNOWN INDICATION
     Route: 048
  10. METFORMINE [Suspect]
     Active Substance: METFORMIN HYDROCHLORIDE
     Indication: TYPE 2 DIABETES MELLITUS
     Route: 048
     Dates: start: 1996
  11. TRIATEC [Suspect]
     Active Substance: RAMIPRIL
     Indication: HYPERTENSION
     Route: 048

REACTIONS (7)
  - Vomiting [Unknown]
  - Abdominal pain [Unknown]
  - Lactic acidosis [Fatal]
  - Diarrhoea [Unknown]
  - Hyperkalaemia [Fatal]
  - Acute kidney injury [Fatal]
  - Hepatic failure [Fatal]

NARRATIVE: CASE EVENT DATE: 20140930
